FAERS Safety Report 18873444 (Version 1)
Quarter: 2021Q1

REPORT INFORMATION
  Report Type: Report from Study
  Country: None (occurrence: US)
  Receive Date: 20210210
  Receipt Date: 20210210
  Transmission Date: 20210420
  Serious: Yes (Hospitalization, Other)
  Sender: FDA-Public Use
  Company Number: US-ABBVIE-17P-163-1956114-00

PATIENT
  Age: 56 Year
  Sex: Female
  Weight: 45.5 kg

DRUGS (26)
  1. DA?R?EPOCH [Concomitant]
     Indication: NON-HODGKIN^S LYMPHOMA
     Route: 042
     Dates: start: 20170405
  2. PREDNISONE. [Concomitant]
     Active Substance: PREDNISONE
     Indication: PRODUCT USED FOR UNKNOWN INDICATION
  3. PROTONIX [Concomitant]
     Active Substance: PANTOPRAZOLE SODIUM
     Indication: PRODUCT USED FOR UNKNOWN INDICATION
  4. MAGIC MOUTHWASH [Concomitant]
     Active Substance: DIPHENHYDRAMINE HYDROCHLORIDE\LIDOCAINE HYDROCHLORIDE\NYSTATIN
     Indication: PRODUCT USED FOR UNKNOWN INDICATION
     Dosage: PRN Q6H
  5. BIOTENE NOS [Concomitant]
     Active Substance: CETYLPYRIDINIUM CHLORIDE OR SODIUM FLUORIDE OR SODIUM MONOFLUOROPHOSPHATE OR GLUCOSE OXIDASE\LACTOFERRIN\LACTOPEROXIDASE BOVINE\LYSOZYME
     Indication: PRODUCT USED FOR UNKNOWN INDICATION
     Dosage: PRN Q6H
  6. DA?R?EPOCH (VINCRISTINE) [Concomitant]
     Indication: NON-HODGKIN^S LYMPHOMA
     Route: 042
     Dates: start: 20170405, end: 20170409
  7. PANTOPRAZOLE SODIUM. [Concomitant]
     Active Substance: PANTOPRAZOLE SODIUM
     Indication: PRODUCT USED FOR UNKNOWN INDICATION
     Dosage: TAB EC
  8. NEULASTA [Concomitant]
     Active Substance: PEGFILGRASTIM
     Indication: PRODUCT USED FOR UNKNOWN INDICATION
  9. LORAZEPAM. [Concomitant]
     Active Substance: LORAZEPAM
     Indication: ANXIETY
     Dosage: NIGHTLY AS NEEDED
     Route: 048
  10. PROCHLORPERAZINE MALEATE. [Concomitant]
     Active Substance: PROCHLORPERAZINE MALEATE
     Indication: PRODUCT USED FOR UNKNOWN INDICATION
  11. VALACYCLOVIR HCL [Concomitant]
     Active Substance: VALACYCLOVIR HYDROCHLORIDE
     Indication: PRODUCT USED FOR UNKNOWN INDICATION
  12. BACTRIM DS [Concomitant]
     Active Substance: SULFAMETHOXAZOLE\TRIMETHOPRIM
     Indication: PRODUCT USED FOR UNKNOWN INDICATION
  13. DA?R?EPOCH (RITUXIMAB) [Concomitant]
     Indication: NON-HODGKIN^S LYMPHOMA
     Route: 042
     Dates: start: 20170405, end: 20170409
  14. DA?R?EPOCH (DOXORUBICIN) [Concomitant]
     Indication: LYMPHOMA TRANSFORMATION
     Route: 042
     Dates: start: 20170405, end: 20170409
  15. ALLOPURINOL. [Concomitant]
     Active Substance: ALLOPURINOL
     Indication: PRODUCT USED FOR UNKNOWN INDICATION
  16. HYDROCODONE?ACETAMINOPHEN [Concomitant]
     Active Substance: ACETAMINOPHEN\HYDROCODONE
     Indication: PAIN
     Dosage: 5?325 MG TAB. TAKE 1?2 TABLET BY ORAL ROUTE EVERY 6 HOURS AS NEEDED
  17. SULFAMETHOXAZOLE?TRIMETHOPRIM [Concomitant]
     Active Substance: SULFAMETHOXAZOLE\TRIMETHOPRIM
     Indication: PRODUCT USED FOR UNKNOWN INDICATION
     Dosage: 800?160 MG
  18. DA?R?EPOCH (ETOPOSIDE) [Concomitant]
     Indication: NON-HODGKIN^S LYMPHOMA
     Route: 042
     Dates: start: 20170405, end: 20170408
  19. VENETOCLAX. [Suspect]
     Active Substance: VENETOCLAX
     Indication: NON-HODGKIN^S LYMPHOMA
     Dosage: C1D3?12
     Route: 048
     Dates: start: 20170407, end: 20170415
  20. ZOLPIDEM TARTRATE. [Concomitant]
     Active Substance: ZOLPIDEM TARTRATE
     Indication: PRODUCT USED FOR UNKNOWN INDICATION
  21. DOCUSATE/SENNA/MIRALAX [Concomitant]
     Indication: PRODUCT USED FOR UNKNOWN INDICATION
  22. DA?R?EPOCH (CYCLOPHOSPHAMIDE) [Concomitant]
     Indication: NON-HODGKIN^S LYMPHOMA
     Route: 042
     Dates: start: 20170405, end: 20170409
  23. ONDANSETRON HCL [Concomitant]
     Active Substance: ONDANSETRON HYDROCHLORIDE
     Indication: PRODUCT USED FOR UNKNOWN INDICATION
  24. VALTREX [Concomitant]
     Active Substance: VALACYCLOVIR HYDROCHLORIDE
     Indication: PRODUCT USED FOR UNKNOWN INDICATION
  25. IRON [Concomitant]
     Active Substance: IRON
     Indication: PRODUCT USED FOR UNKNOWN INDICATION
  26. DA?R?EPOCH (PREDNISONE) [Concomitant]
     Indication: NON-HODGKIN^S LYMPHOMA
     Route: 042
     Dates: start: 20170405, end: 20170409

REACTIONS (4)
  - Neutrophil count decreased [Recovered/Resolved]
  - Febrile neutropenia [Not Recovered/Not Resolved]
  - White blood cell count decreased [Recovered/Resolved]
  - Lymphocyte count decreased [Not Recovered/Not Resolved]

NARRATIVE: CASE EVENT DATE: 20170414
